FAERS Safety Report 5632296-2 (Version None)
Quarter: 2008Q1

REPORT INFORMATION
  Report Type: 
  Country: None (occurrence: None)
  Receive Date: 20080212
  Receipt Date: 20080128
  Transmission Date: 20080703
  Serious: Yes (Hospitalization)
  Sender: FDA-Public Use
  Company Number: 2007AL001353

PATIENT
  Age: 49 Year
  Sex: Female

DRUGS (4)
  1. SERTRALINE HYDROCHLORIDE [Suspect]
     Dosage: X1
  2. ACETAMINOPHEN [Concomitant]
  3. RISPERIDONE [Concomitant]
  4. CO-PROXAMOL [Concomitant]

REACTIONS (8)
  - BRAIN OEDEMA [None]
  - GENERAL PHYSICAL HEALTH DETERIORATION [None]
  - HAEMODIALYSIS [None]
  - HEPATIC ENCEPHALOPATHY [None]
  - MULTIPLE DRUG OVERDOSE [None]
  - OLIGURIA [None]
  - PULMONARY OEDEMA [None]
  - SOMNOLENCE [None]
